FAERS Safety Report 8779719 (Version 1)
Quarter: 2012Q4

REPORT INFORMATION
  Report Type: 
  Country: US (occurrence: US)
  Receive Date: 20120912
  Receipt Date: 20120912
  Transmission Date: 20130627
  Serious: No
  Sender: FDA-Public Use
  Company Number: US-TEVA-343603USA

PATIENT
  Sex: Female
  Weight: 59.02 kg

DRUGS (2)
  1. QNASL [Suspect]
     Indication: RHINITIS ALLERGIC
     Dates: start: 20120327, end: 201205
  2. CETIRIZINE HYDROCHLORIDE [Concomitant]
     Indication: HYPERSENSITIVITY

REACTIONS (1)
  - Ageusia [Recovered/Resolved]
